FAERS Safety Report 12894087 (Version 1)
Quarter: 2016Q4

REPORT INFORMATION
  Report Type: Report from Study
  Country: TR (occurrence: TR)
  Receive Date: 20161028
  Receipt Date: 20161028
  Transmission Date: 20170207
  Serious: Yes (Other)
  Sender: FDA-Public Use
  Company Number: TR-MYLANLABS-2016M1046419

PATIENT

DRUGS (4)
  1. MIRTAZAPINE. [Suspect]
     Active Substance: MIRTAZAPINE
     Indication: MENTAL DISORDER
     Dosage: 30 MG/DAY (IN 5-12 GESTATION WEEKS)
     Route: 065
  2. CLOMIPRAMINE [Suspect]
     Active Substance: CLOMIPRAMINE
     Indication: MENTAL DISORDER
     Dosage: 10 MG/DAY (IN 5-12 GESTATION WEEKS)
     Route: 065
  3. FLURBIPROFEN. [Suspect]
     Active Substance: FLURBIPROFEN
     Indication: PRODUCT USED FOR UNKNOWN INDICATION
     Dosage: 100 MG/DAY (IN 5-12 GESTATION WEEKS)
     Route: 065
  4. FLUOXETINE [Suspect]
     Active Substance: FLUOXETINE HYDROCHLORIDE
     Indication: MENTAL DISORDER
     Dosage: 20 MG/DAY (IN 5-12 GESTATION WEEKS)
     Route: 065

REACTIONS (2)
  - Abortion spontaneous [Recovered/Resolved]
  - Exposure during pregnancy [Recovered/Resolved]
